FAERS Safety Report 4849928-9 (Version None)
Quarter: 2005Q4

REPORT INFORMATION
  Report Type: 
  Country: None (occurrence: None)
  Receive Date: 20051115
  Receipt Date: 20050803
  Transmission Date: 20060501
  Serious: Yes (Disabling)
  Sender: FDA-Public Use
  Company Number: 413053

PATIENT
  Age: 42 Year
  Sex: Female
  Weight: 54.9 kg

DRUGS (3)
  1. PEGASYS [Suspect]
     Indication: HEPATITIS C VIRUS
     Dosage: 180 MCG 1 PER WEEK SUBCUTANEOUS
     Route: 058
     Dates: start: 20050423
  2. COPEGUS [Suspect]
     Indication: HEPATITIS C VIRUS
     Dosage: 5 DOSE FORM DAILY ORAL
     Route: 048
     Dates: start: 20050425
  3. FERROUS GLUCONATE (FERROUS GLUCONATE) [Concomitant]

REACTIONS (5)
  - ARTHRALGIA [None]
  - JOINT SWELLING [None]
  - NAUSEA [None]
  - RHEUMATOID ARTHRITIS [None]
  - SWELLING [None]
